FAERS Safety Report 5573760-4 (Version None)
Quarter: 2007Q4

REPORT INFORMATION
  Report Type: 
  Country: None (occurrence: None)
  Receive Date: 20071226
  Receipt Date: 20071218
  Transmission Date: 20080405
  Serious: Yes (Death)
  Sender: FDA-Public Use
  Company Number: US-TEVA-165489USA

PATIENT
  Age: 44 Year
  Sex: Male

DRUGS (1)
  1. GABAPENTIN [Suspect]
     Indication: PAIN
     Dates: start: 20030530

REACTIONS (2)
  - COMPLETED SUICIDE [None]
  - SUICIDAL IDEATION [None]
